FAERS Safety Report 19493652 (Version 1)
Quarter: 2021Q3

REPORT INFORMATION
  Report Type: Spontaneous
  Country: FR (occurrence: FR)
  Receive Date: 20210705
  Receipt Date: 20210705
  Transmission Date: 20211014
  Serious: Yes (Death)
  Sender: FDA-Public Use
  Company Number: FR-TEVA-2021-FR-1927937

PATIENT
  Age: 38 Year
  Sex: Female

DRUGS (3)
  1. THIOCOLCHICOSIDE [Suspect]
     Active Substance: THIOCOLCHICOSIDE
     Dosage: 12DOSAGEFORM
     Route: 048
     Dates: start: 20210608
  2. ALPRAZOLAM. [Suspect]
     Active Substance: ALPRAZOLAM
     Dosage: 90DOSAGEFORM
     Route: 048
     Dates: start: 20210608
  3. CHLORHYDRATE DE VERAPAMIL [Suspect]
     Active Substance: VERAPAMIL HYDROCHLORIDE
     Dosage: 120DOSAGEFORM
     Route: 048
     Dates: start: 20210608

REACTIONS (1)
  - Coma [Fatal]

NARRATIVE: CASE EVENT DATE: 20210609
